FAERS Safety Report 15111388 (Version 1)
Quarter: 2018Q2

REPORT INFORMATION
  Report Type: Spontaneous
  Country: US (occurrence: US)
  Receive Date: 20180612
  Receipt Date: 20180612
  Transmission Date: 20180711
  Serious: Yes (Death, Hospitalization)
  Sender: FDA-Public Use
  Company Number: None

PATIENT
  Sex: Female
  Weight: 94 kg

DRUGS (1)
  1. NALOXEGOL ACETATE [Suspect]
     Active Substance: NALOXEGOL
     Dates: start: 20180521

REACTIONS (7)
  - Pain [None]
  - Delirium [None]
  - Heart rate abnormal [None]
  - Movement disorder [None]
  - Respiratory rate decreased [None]
  - Cerebral haemorrhage [None]
  - Back pain [None]

NARRATIVE: CASE EVENT DATE: 20180521
